FAERS Safety Report 16051351 (Version 8)
Quarter: 2022Q2

REPORT INFORMATION
  Report Type: Report from Study
  Country: US (occurrence: None)
  Receive Date: 20190308
  Receipt Date: 20220420
  Transmission Date: 20220720
  Serious: Yes (Hospitalization, Other)
  Sender: FDA-Public Use
  Company Number: US-ROCHE-2278121

PATIENT
  Age: 69 Year
  Sex: Male
  Weight: 82.4 kg

DRUGS (33)
  1. VENETOCLAX [Suspect]
     Active Substance: VENETOCLAX
     Indication: Diffuse large B-cell lymphoma
     Route: 048
     Dates: start: 20190207, end: 20190211
  2. VENETOCLAX [Suspect]
     Active Substance: VENETOCLAX
     Route: 048
     Dates: start: 20190117, end: 20190121
  3. RITUXIMAB [Suspect]
     Active Substance: RITUXIMAB
     Indication: Diffuse large B-cell lymphoma
     Route: 042
     Dates: start: 20190207, end: 20190211
  4. DOXORUBICIN [Suspect]
     Active Substance: DOXORUBICIN
     Indication: Diffuse large B-cell lymphoma
     Route: 042
     Dates: start: 20190207, end: 20190211
  5. DOXORUBICIN [Suspect]
     Active Substance: DOXORUBICIN
     Route: 042
     Dates: start: 20190116, end: 20190120
  6. CYCLOPHOSPHAMIDE [Suspect]
     Active Substance: CYCLOPHOSPHAMIDE
     Indication: Diffuse large B-cell lymphoma
     Route: 042
     Dates: start: 20190207, end: 20190211
  7. CYCLOPHOSPHAMIDE [Suspect]
     Active Substance: CYCLOPHOSPHAMIDE
     Route: 042
     Dates: start: 20190116, end: 20190120
  8. ETOPOSIDE [Suspect]
     Active Substance: ETOPOSIDE
     Indication: Diffuse large B-cell lymphoma
     Route: 042
     Dates: start: 20190207, end: 20190211
  9. ETOPOSIDE [Suspect]
     Active Substance: ETOPOSIDE
     Route: 042
     Dates: start: 20190116, end: 20190120
  10. VINCRISTINE [Suspect]
     Active Substance: VINCRISTINE
     Indication: Diffuse large B-cell lymphoma
     Route: 042
  11. ACETAMINOPHEN [Concomitant]
     Active Substance: ACETAMINOPHEN
  12. ACYCLOVIR [Concomitant]
     Active Substance: ACYCLOVIR
  13. MAGIC MOUTHWASH [DIPHENHYDRAMINE;LIDOCAINE;MYLANTA] [Concomitant]
  14. LIPITOR [Concomitant]
     Active Substance: ATORVASTATIN CALCIUM
  15. COLACE [Concomitant]
     Active Substance: DOCUSATE SODIUM
  16. FLUCONAZOLE [Concomitant]
     Active Substance: FLUCONAZOLE
  17. HYDROCHLOROTHIAZIDE [Concomitant]
     Active Substance: HYDROCHLOROTHIAZIDE
  18. NORCO [Concomitant]
     Active Substance: ACETAMINOPHEN\HYDROCODONE BITARTRATE
     Route: 048
  19. PREVACID [Concomitant]
     Active Substance: LANSOPRAZOLE
     Route: 048
  20. OXYCODONE [Concomitant]
     Active Substance: OXYCODONE
  21. PANTOPRAZOLE [Concomitant]
     Active Substance: PANTOPRAZOLE
  22. MIRALAX [Concomitant]
     Active Substance: POLYETHYLENE GLYCOL 3350
  23. HYDRODIURIL [Concomitant]
     Active Substance: HYDROCHLOROTHIAZIDE
  24. ZOFRAN [Concomitant]
     Active Substance: ONDANSETRON HYDROCHLORIDE
  25. QUINAPRIL [Concomitant]
     Active Substance: QUINAPRIL
  26. DOCUSATE SODIUM\SENNOSIDES [Concomitant]
     Active Substance: DOCUSATE SODIUM\SENNOSIDES
  27. TRAMADOL [Concomitant]
     Active Substance: TRAMADOL
     Route: 048
  28. ASPIRIN [Concomitant]
     Active Substance: ASPIRIN
     Route: 048
  29. ZYLOPRIM [Concomitant]
     Active Substance: ALLOPURINOL
     Dosage: FOR 14 DAYS
     Route: 048
  30. COMPAZINE [Concomitant]
     Active Substance: PROCHLORPERAZINE MALEATE
  31. SODIUM CHLORIDE [Concomitant]
     Active Substance: SODIUM CHLORIDE
     Route: 011
  32. HEPARIN [Concomitant]
     Active Substance: HEPARIN SODIUM
     Dosage: 100 UNIT/ML
     Route: 042
  33. ATIVAN [Concomitant]
     Active Substance: LORAZEPAM
     Indication: Anxiety
     Route: 048

REACTIONS (7)
  - Febrile neutropenia [Recovered/Resolved]
  - Orthostatic hypotension [Recovered/Resolved]
  - Pneumonia [Recovered/Resolved]
  - Lymphocyte count decreased [Recovered/Resolved]
  - Neutrophil count decreased [Recovered/Resolved]
  - White blood cell count decreased [Recovered/Resolved]
  - Platelet count decreased [Recovered/Resolved]

NARRATIVE: CASE EVENT DATE: 20190119
